FAERS Safety Report 18093666 (Version 2)
Quarter: 2020Q3

REPORT INFORMATION
  Report Type: Spontaneous
  Country: US (occurrence: US)
  Receive Date: 20200730
  Receipt Date: 20200903
  Transmission Date: 20201103
  Serious: Yes (Other)
  Sender: FDA-Public Use
  Company Number: US-MEDEXUS PHARMA, INC.-2020MED00196

PATIENT
  Age: 66 Year
  Sex: Female

DRUGS (17)
  1. ALLEGRA [Concomitant]
     Active Substance: FEXOFENADINE HYDROCHLORIDE
  2. FLONASE [Concomitant]
     Active Substance: FLUTICASONE PROPIONATE
  3. SUDAFED [Concomitant]
     Active Substance: PSEUDOEPHEDRINE HYDROCHLORIDE
  4. MONTELUKAST [Concomitant]
     Active Substance: MONTELUKAST SODIUM
  5. RASUVO [Suspect]
     Active Substance: METHOTREXATE SODIUM
     Indication: ARTHRITIS
     Dosage: 20 MG, 1X/WEEK EVERY THURSDAY INJECTED IN THE STOMACH
     Dates: start: 2019, end: 202001
  6. BIOTIN [Concomitant]
     Active Substance: BIOTIN
  7. MAGNESIUM [Concomitant]
     Active Substance: MAGNESIUM
  8. VITAMIN C [Concomitant]
     Active Substance: ASCORBIC ACID
  9. ZINC. [Concomitant]
     Active Substance: ZINC
  10. VITAMIN D3 [Concomitant]
     Active Substance: CHOLECALCIFEROL
  11. VITAMIN A [Concomitant]
     Active Substance: VITAMIN A
  12. RASUVO [Suspect]
     Active Substance: METHOTREXATE SODIUM
     Dosage: 10 MG SAMPLE, ONCE
     Dates: start: 2020, end: 2020
  13. MULTIVITAMIN [Concomitant]
     Active Substance: VITAMINS
  14. OMEPRAZOLE. [Concomitant]
     Active Substance: OMEPRAZOLE
  15. FOLIC ACID. [Concomitant]
     Active Substance: FOLIC ACID
  16. VITAMIN B12 [Concomitant]
     Active Substance: CYANOCOBALAMIN
  17. RASUVO [Suspect]
     Active Substance: METHOTREXATE SODIUM
     Dosage: 25 MG, 1X/WEEK EVERY THURSDAY INJECTED INTO STOMACH
     Dates: start: 202001

REACTIONS (6)
  - Device malfunction [Recovered/Resolved]
  - Alopecia [Recovering/Resolving]
  - Therapeutic product effect incomplete [Recovering/Resolving]
  - Foot fracture [Recovered/Resolved]
  - Device failure [Recovered/Resolved]
  - Product dose omission issue [Recovered/Resolved]

NARRATIVE: CASE EVENT DATE: 201910
